FAERS Safety Report 5553862-9 (Version None)
Quarter: 2007Q4

REPORT INFORMATION
  Report Type: 
  Country: None (occurrence: None)
  Receive Date: 20071213
  Receipt Date: 20070716
  Transmission Date: 20080405
  Serious: No
  Sender: FDA-Public Use
  Company Number: US-AMGEN-KDL234573

PATIENT
  Sex: Female

DRUGS (2)
  1. ENBREL [Suspect]
     Indication: ANKYLOSING SPONDYLITIS
     Route: 058
     Dates: start: 20041001
  2. ENBREL [Suspect]
     Indication: PSORIASIS

REACTIONS (2)
  - ANKYLOSING SPONDYLITIS [None]
  - PSORIASIS [None]
